FAERS Safety Report 13390765 (Version 1)
Quarter: 2017Q1

REPORT INFORMATION
  Report Type: Spontaneous
  Country: CH (occurrence: CH)
  Receive Date: 20170331
  Receipt Date: 20170331
  Transmission Date: 20170429
  Serious: Yes (Death, Hospitalization, Other)
  Sender: FDA-Public Use
  Company Number: CH-CELGENEUS-CHE-2017035996

PATIENT
  Age: 48 Year
  Sex: Female

DRUGS (1)
  1. ISTODAX [Suspect]
     Active Substance: ROMIDEPSIN
     Indication: T-CELL LYMPHOMA
     Route: 041

REACTIONS (4)
  - Varicella zoster virus infection [Unknown]
  - Clostridium colitis [Unknown]
  - T-cell lymphoma [Fatal]
  - Influenza [Unknown]
